FAERS Safety Report 9994702 (Version 2)
Quarter: 2014Q2

REPORT INFORMATION
  Report Type: Spontaneous
  Country: FR (occurrence: FR)
  Receive Date: 20140311
  Receipt Date: 20140410
  Transmission Date: 20141212
  Serious: Yes (Other)
  Sender: FDA-Public Use
  Company Number: FR-BAYER-2014-031326

PATIENT
  Sex: Female

DRUGS (2)
  1. BETAFERON [Suspect]
  2. BETACOMFORT [Suspect]
     Indication: DEVICE THERAPY

REACTIONS (3)
  - Haemorrhage [None]
  - Injection site pain [None]
  - Device malfunction [Unknown]
